FAERS Safety Report 20538235 (Version 1)
Quarter: 2022Q1

REPORT INFORMATION
  Report Type: Spontaneous
  Country: CA (occurrence: CA)
  Receive Date: 20220302
  Receipt Date: 20220302
  Transmission Date: 20220424
  Serious: Yes (Other)
  Sender: FDA-Public Use
  Company Number: CA-JNJFOC-20210850620

PATIENT
  Age: 15 Year
  Sex: Male

DRUGS (3)
  1. RISPERDAL [Interacting]
     Active Substance: RISPERIDONE
     Indication: Attention deficit hyperactivity disorder
     Route: 065
  2. ERYTHROMYCIN [Suspect]
     Active Substance: ERYTHROMYCIN
     Indication: Acne
     Route: 048
  3. CLOMIPRAMINE [Suspect]
     Active Substance: CLOMIPRAMINE
     Indication: Attention deficit hyperactivity disorder
     Route: 065

REACTIONS (3)
  - Serotonin syndrome [Unknown]
  - Toxicity to various agents [Unknown]
  - Drug interaction [Unknown]
